FAERS Safety Report 6077921-X (Version None)
Quarter: 2009Q1

REPORT INFORMATION
  Report Type: 
  Country: None (occurrence: None)
  Receive Date: 20090213
  Receipt Date: 20090204
  Transmission Date: 20090719
  Serious: Yes (Hospitalization)
  Sender: FDA-Public Use
  Company Number: US-KINGPHARMUSA00001-K200801309

PATIENT
  Age: 61 Year
  Sex: Male
  Weight: 56.3 kg

DRUGS (24)
  1. THROMBIN NOS [Suspect]
     Indication: HAEMOSTASIS
     Dosage: 20000 U, SINGLE
     Route: 061
     Dates: start: 20080520, end: 20080520
  2. THROMBIN NOS [Suspect]
     Dosage: 20000 U, SINGLE
     Route: 061
     Dates: start: 20080602, end: 20080602
  3. COUMADIN [Suspect]
     Indication: ANTICOAGULANT THERAPY
     Dosage: 1 - 6 MG, AS ORDERED
     Route: 048
     Dates: start: 20080522, end: 20080610
  4. HEPARIN [Suspect]
     Dosage: UNK
     Dates: start: 20080501, end: 20080601
  5. ASPIRIN [Concomitant]
     Dosage: 81 MG, QD
     Route: 048
  6. PLAVIX [Concomitant]
     Dosage: UNK
     Dates: end: 20080101
  7. SIMVASTATIN [Concomitant]
     Dosage: 20 MG, QHS
     Route: 048
  8. NEXIUM                             /01479303/ [Concomitant]
     Dosage: 40 MG, QID
     Route: 048
  9. TOPROL-XL [Concomitant]
     Dosage: 12..5 - 50 MG, BID
     Route: 048
  10. LACEROL ^LAXORAL^ [Concomitant]
  11. MORPHINE [Concomitant]
     Dosage: 2 MG, PRN
     Route: 042
  12. LOVENOX [Concomitant]
     Indication: ANTICOAGULANT THERAPY
     Dosage: 40 MG, QD
     Route: 058
     Dates: start: 20080514, end: 20080520
  13. LOVENOX [Concomitant]
     Dosage: 40 MG, QD
     Route: 058
     Dates: start: 20080528, end: 20080528
  14. LOVENOX [Concomitant]
     Dosage: 60 MG, QD
     Route: 058
     Dates: start: 20080529, end: 20080601
  15. LOVENOX [Concomitant]
     Dosage: 40 MG, QD
     Route: 058
     Dates: start: 20080605, end: 20080608
  16. EZETIMIBE [Concomitant]
     Dosage: 10 MG, QHS
     Route: 048
  17. NORCO [Concomitant]
     Indication: PAIN
     Dosage: UNK
     Route: 048
  18. WELLBUTRIN [Concomitant]
     Indication: SMOKING CESSATION THERAPY
     Dosage: 150 MG, QD
     Route: 048
     Dates: start: 20080515
  19. CILOSTAZOL [Concomitant]
     Dosage: 100 MG, BID
     Route: 048
  20. AMLODIPINE [Concomitant]
     Dosage: 5 MG, QD
     Route: 048
     Dates: start: 20080521
  21. DOCUSATE SODIUM [Concomitant]
     Dosage: 100 MG, QD
     Route: 048
     Dates: start: 20080521
  22. FENTANYL [Concomitant]
     Indication: PAIN
     Dosage: 50 MCG, PRN
     Route: 042
     Dates: start: 20080520
  23. INSULIN                            /00646001/ [Concomitant]
     Dosage: SLIDING SCALE
  24. MINOCIN [Concomitant]
     Dosage: 100 MG, BID
     Route: 048
     Dates: start: 20080530

REACTIONS (8)
  - ABDOMINAL MASS [None]
  - ABDOMINAL PAIN LOWER [None]
  - BLOOD THROMBIN ABNORMAL [None]
  - COAGULOPATHY [None]
  - FACTOR V INHIBITION [None]
  - FLANK PAIN [None]
  - HAEMORRHAGE [None]
  - RETROPERITONEAL HAEMATOMA [None]
